FAERS Safety Report 8538729-6 (Version None)
Quarter: 2012Q3

REPORT INFORMATION
  Report Type: 
  Country: None (occurrence: None)
  Receive Date: 20120726
  Receipt Date: 20120410
  Transmission Date: 20120928
  Serious: Yes (Other)
  Sender: FDA-Public Use
  Company Number: NG-RANBAXY-2012R5-58501

PATIENT
  Age: 51 Year

DRUGS (1)
  1. NAPROXEN [Suspect]
     Indication: PAIN IN EXTREMITY
     Dosage: UNK
     Route: 065

REACTIONS (4)
  - GASTRIC ULCER [None]
  - PAIN IN EXTREMITY [None]
  - DYSPEPSIA [None]
  - MUSCULOSKELETAL CHEST PAIN [None]
